FAERS Safety Report 14056854 (Version 5)
Quarter: 2018Q1

REPORT INFORMATION
  Report Type: Spontaneous
  Country: US (occurrence: US)
  Receive Date: 20171006
  Receipt Date: 20180326
  Transmission Date: 20180508
  Serious: Yes (Hospitalization, Other)
  Sender: FDA-Public Use
  Company Number: US-PFIZER INC-2017077368

PATIENT
  Age: 75 Year
  Sex: Female
  Weight: 95.71 kg

DRUGS (1)
  1. XELJANZ XR [Suspect]
     Active Substance: TOFACITINIB CITRATE
     Indication: RHEUMATOID ARTHRITIS
     Dosage: 11 MG, 1X/DAY
     Route: 048
     Dates: start: 2016

REACTIONS (8)
  - Asthenia [Unknown]
  - Visual impairment [Unknown]
  - Cerebrovascular accident [Not Recovered/Not Resolved]
  - Visual field defect [Unknown]
  - Cognitive disorder [Unknown]
  - Confusional state [Unknown]
  - Headache [Unknown]
  - Migraine [Not Recovered/Not Resolved]

NARRATIVE: CASE EVENT DATE: 20170930
